FAERS Safety Report 6690533-X (Version None)
Quarter: 2010Q2

REPORT INFORMATION
  Report Type: 
  Country: None (occurrence: None)
  Receive Date: 20100421
  Receipt Date: 20100411
  Transmission Date: 20101027
  Serious: Yes (Hospitalization, Other)
  Sender: FDA-Public Use
  Company Number: US-AMGEN-QUU398591

PATIENT
  Sex: Male
  Weight: 78.2 kg

DRUGS (2)
  1. ENBREL [Suspect]
     Indication: ANKYLOSING SPONDYLITIS
     Route: 058
     Dates: start: 20090902
  2. PREDNISONE TAB [Concomitant]

REACTIONS (12)
  - ARTHRALGIA [None]
  - DIABETES MELLITUS [None]
  - GAIT DISTURBANCE [None]
  - HYPERTENSION [None]
  - INJECTION SITE MASS [None]
  - INJECTION SITE PAIN [None]
  - LOWER RESPIRATORY TRACT INFECTION [None]
  - PAIN IN EXTREMITY [None]
  - PERICARDIAL EFFUSION [None]
  - RESPIRATORY TRACT CONGESTION [None]
  - SINUSITIS [None]
  - UPPER RESPIRATORY TRACT INFECTION [None]
